FAERS Safety Report 11150537 (Version 2)
Quarter: 2015Q2

REPORT INFORMATION
  Report Type: Report from Study
  Country: US (occurrence: US)
  Receive Date: 20150601
  Receipt Date: 20150617
  Transmission Date: 20150821
  Serious: Yes (Other)
  Sender: FDA-Public Use
  Company Number: US-AMGEN-USASL2015052131

PATIENT
  Age: 67 Year
  Sex: Female

DRUGS (2)
  1. ENBREL [Suspect]
     Active Substance: ETANERCEPT
     Indication: RHEUMATOID ARTHRITIS
     Dosage: 50 MG, QWK
     Route: 065
     Dates: start: 20150429
  2. ENBREL [Suspect]
     Active Substance: ETANERCEPT
     Dosage: UNK UNK, UNK
     Route: 065

REACTIONS (11)
  - Breast injury [Not Recovered/Not Resolved]
  - Tachyphrenia [Not Recovered/Not Resolved]
  - Dyskinesia [Not Recovered/Not Resolved]
  - Fall [Not Recovered/Not Resolved]
  - Contusion [Unknown]
  - Feeling abnormal [Not Recovered/Not Resolved]
  - Arthritis [Not Recovered/Not Resolved]
  - Blood sodium decreased [Not Recovered/Not Resolved]
  - Injection site pain [Recovered/Resolved]
  - Breast pain [Not Recovered/Not Resolved]
  - Implant site bruising [Not Recovered/Not Resolved]

NARRATIVE: CASE EVENT DATE: 2015
